FAERS Safety Report 4395837-1 (Version None)
Quarter: 2004Q3

REPORT INFORMATION
  Report Type: 
  Country: None (occurrence: None)
  Receive Date: 20040708
  Receipt Date: 20040628
  Transmission Date: 20050211
  Serious: Yes (Death)
  Sender: FDA-Public Use
  Company Number: US-JNJFOC-20040503038

PATIENT
  Age: 70 Year
  Sex: Male

DRUGS (1)
  1. DURAGESIC [Suspect]
     Indication: CANCER PAIN
     Dosage: 1 IN 48 HOUR, TRANSDERMAL
     Route: 062
     Dates: start: 20030101, end: 20030912

REACTIONS (1)
  - MEDICATION ERROR [None]
